FAERS Safety Report 8811332 (Version 1)
Quarter: 2012Q4

REPORT INFORMATION
  Report Type: 
  Country: ES (occurrence: ES)
  Receive Date: 20120927
  Receipt Date: 20120927
  Transmission Date: 20130627
  Serious: Yes (Hospitalization)
  Sender: FDA-Public Use
  Company Number: ES-ELI_LILLY_AND_COMPANY-ES201202002092

PATIENT
  Age: 12 Year
  Sex: Male

DRUGS (1)
  1. STRATTERA [Suspect]
     Indication: ATTENTION DEFICIT/HYPERACTIVITY DISORDER
     Dosage: 40 mg, unknown
     Route: 048
     Dates: start: 201112, end: 20120128

REACTIONS (3)
  - Delusional disorder, mixed type [Recovered/Resolved]
  - Hallucinations, mixed [Recovered/Resolved]
  - Thinking abnormal [Recovered/Resolved]
